FAERS Safety Report 6908011-9 (Version None)
Quarter: 2010Q3

REPORT INFORMATION
  Report Type: 
  Country: None (occurrence: None)
  Receive Date: 20100805
  Receipt Date: 20100727
  Transmission Date: 20110219
  Serious: Yes (Hospitalization)
  Sender: FDA-Public Use
  Company Number: US-ELI_LILLY_AND_COMPANY-US201007003746

PATIENT
  Sex: Female
  Weight: 78.005 kg

DRUGS (11)
  1. BYETTA [Suspect]
     Indication: TYPE 2 DIABETES MELLITUS
     Dosage: 5 UG, 2/D
     Route: 058
     Dates: start: 20060331, end: 20060524
  2. BYETTA [Suspect]
     Dosage: 10 UG, 2/D
     Route: 058
     Dates: start: 20060525
  3. ATENOLOL [Concomitant]
  4. LASIX [Concomitant]
  5. ASPIRIN [Concomitant]
  6. METFORMIN HCL [Concomitant]
  7. LEVEMIR [Concomitant]
  8. ZETIA [Concomitant]
  9. LIPITOR [Concomitant]
  10. LEVOTHYROXINE [Concomitant]
  11. AMLODIPINE [Concomitant]

REACTIONS (3)
  - OFF LABEL USE [None]
  - PANCREATITIS [None]
  - WEIGHT DECREASED [None]
